FAERS Safety Report 5786098-7 (Version None)
Quarter: 2008Q2

REPORT INFORMATION
  Report Type: 
  Country: None (occurrence: None)
  Receive Date: 20080620
  Receipt Date: 20080620
  Transmission Date: 20081010
  Serious: Yes (Hospitalization)
  Sender: FDA-Public Use
  Company Number: None

PATIENT
  Age: 60 Year
  Sex: Male

DRUGS (2)
  1. CIPROFLOXACIN [Suspect]
     Indication: EVIDENCE BASED TREATMENT
     Dosage: 500 MG BID PO
     Route: 048
     Dates: start: 20080506, end: 20080509
  2. CIPROFLOXACIN [Suspect]
     Indication: INFECTION
     Dosage: 500 MG BID PO
     Route: 048
     Dates: start: 20080506, end: 20080509

REACTIONS (3)
  - PRURITUS [None]
  - RASH [None]
  - URTICARIA [None]
